FAERS Safety Report 8422934-3 (Version None)
Quarter: 2012Q2

REPORT INFORMATION
  Report Type: 
  Country: None (occurrence: None)
  Receive Date: 20120608
  Receipt Date: 20120531
  Transmission Date: 20120825
  Serious: Yes (Hospitalization)
  Sender: FDA-Public Use
  Company Number: BE-GLAXOSMITHKLINE-B0794284A

PATIENT
  Sex: Female

DRUGS (5)
  1. VITAMIN D [Concomitant]
     Indication: OSTEOPOROSIS
     Route: 030
  2. VALPROATE SODIUM [Concomitant]
     Indication: EPILEPSY
     Route: 048
  3. CALCIUM [Concomitant]
     Indication: OSTEOPOROSIS
     Route: 048
  4. LAMICTAL [Suspect]
     Indication: EPILEPSY
     Dosage: 200MG PER DAY
     Route: 048
  5. LEVETIRACETAM [Concomitant]
     Indication: EPILEPSY
     Route: 048

REACTIONS (6)
  - HYPOKINESIA [None]
  - LUNG DISORDER [None]
  - HYPOTHERMIA [None]
  - OVERDOSE [None]
  - APATHY [None]
  - DRUG ADMINISTRATION ERROR [None]
